FAERS Safety Report 8977983 (Version 1)
Quarter: 2012Q4

REPORT INFORMATION
  Report Type: Report from Study
  Country: CA (occurrence: CA)
  Receive Date: 20121220
  Receipt Date: 20121220
  Transmission Date: 20130627
  Serious: Yes (Other)
  Sender: FDA-Public Use
  Company Number: CA-ROCHE-1168721

PATIENT
  Sex: Female

DRUGS (2)
  1. OMALIZUMAB [Suspect]
     Indication: ASTHMA
     Route: 058
     Dates: start: 20070711
  2. OMALIZUMAB [Suspect]
     Route: 058
     Dates: start: 20100207

REACTIONS (5)
  - Bronchitis [Unknown]
  - Asthma [Unknown]
  - Lower respiratory tract infection [Unknown]
  - Hypersensitivity [Recovering/Resolving]
  - Hypoventilation [Unknown]
